FAERS Safety Report 4973492-7 (Version None)
Quarter: 2006Q2

REPORT INFORMATION
  Report Type: 
  Country: None (occurrence: None)
  Receive Date: 20060407
  Receipt Date: 20060216
  Transmission Date: 20061013
  Serious: Yes (Hospitalization)
  Sender: FDA-Public Use
  Company Number: STA-AE-06-009

PATIENT
  Age: 60 Year
  Sex: Female

DRUGS (2)
  1. LORAZEPAM [Suspect]
     Indication: CONVULSION
     Dosage: 1092MG IV OVER 3 DAYS
  2. DIAZEPAM [Suspect]
     Indication: CONVULSION
     Dosage: 290MG IV OVER 3 DAYS

REACTIONS (4)
  - BLOOD BICARBONATE DECREASED [None]
  - BLOOD LACTIC ACID INCREASED [None]
  - BLOOD OSMOLARITY INCREASED [None]
  - OSMOLAR GAP ABNORMAL [None]
